FAERS Safety Report 5714793-4 (Version None)
Quarter: 2008Q2

REPORT INFORMATION
  Report Type: 
  Country: None (occurrence: None)
  Receive Date: 20080423
  Receipt Date: 20050613
  Transmission Date: 20081010
  Serious: Yes (Death)
  Sender: FDA-Public Use
  Company Number: MX-ROCHE-501532

PATIENT
  Sex: Female
  Weight: 73 kg

DRUGS (3)
  1. MYCOPHENOLATE MOFETIL [Suspect]
     Route: 048
     Dates: start: 20030217
  2. CYCLOSPORINE [Suspect]
     Route: 048
     Dates: start: 20050111
  3. PREDNISONE [Suspect]
     Route: 048
     Dates: start: 20031129

REACTIONS (1)
  - DEATH [None]
